FAERS Safety Report 7952004-X (Version None)
Quarter: 2011Q4

REPORT INFORMATION
  Report Type: 
  Country: None (occurrence: None)
  Receive Date: 20111201
  Receipt Date: 20111122
  Transmission Date: 20120403
  Serious: Yes (Hospitalization)
  Sender: FDA-Public Use
  Company Number: US-ASTRAZENECA-2011SE71939

PATIENT
  Age: 28105 Day
  Sex: Female

DRUGS (6)
  1. ASPIRIN [Concomitant]
     Route: 048
  2. FUROSEMIDE [Concomitant]
     Indication: DIURETIC THERAPY
     Route: 048
  3. SIMVASTATIN [Concomitant]
     Indication: HYPERCHOLESTEROLAEMIA
     Route: 048
  4. RAMIPRIL [Concomitant]
     Indication: PROPHYLAXIS
     Route: 048
  5. PLAVIX [Suspect]
     Indication: CORONARY ARTERY DISEASE
     Route: 048
     Dates: start: 20111004, end: 20111121
  6. BISOPROLOL FUMARATE [Concomitant]
     Indication: ANGIOPATHY
     Route: 048

REACTIONS (1)
  - FALL [None]
